FAERS Safety Report 9524036 (Version 1)
Quarter: 2013Q3

REPORT INFORMATION
  Report Type: Spontaneous
  Country: ES (occurrence: None)
  Receive Date: 20130912
  Receipt Date: 20130912
  Transmission Date: 20140515
  Serious: Yes (Hospitalization)
  Sender: FDA-Public Use
  Company Number: FK201304121

PATIENT
  Age: 78 Year
  Sex: Female

DRUGS (2)
  1. CLINDAMYCIN (MANUFACTURER UNKNOWN) (CLINDAMYCIN) (CLINDAMYCIN) [Suspect]
     Indication: HIP ARTHROPLASTY
  2. LEVOFLOXACIN [Suspect]
     Indication: HIP ARTHROPLASTY

REACTIONS (2)
  - Acute generalised exanthematous pustulosis [None]
  - Drug eruption [None]
